FAERS Safety Report 4273774-0 (Version None)
Quarter: 2004Q1

REPORT INFORMATION
  Report Type: 
  Country: None (occurrence: None)
  Receive Date: 20040114
  Receipt Date: 20030404
  Transmission Date: 20041129
  Serious: No
  Sender: FDA-Public Use
  Company Number: 03H-087-0215530-00

PATIENT
  Age: 26 Year
  Sex: Female

DRUGS (2)
  1. RITODRINE HYDROCHLORIDE INJECTION (RITODRINE HYDROCHLORIDE) [Suspect]
     Indication: PREMATURE LABOUR
     Dosage: SEE IMAGE
     Route: 042
     Dates: start: 20020101
  2. RITODRINE HYDROCHLORIDE INJECTION (RITODRINE HYDROCHLORIDE) [Suspect]
     Indication: PREMATURE LABOUR
     Dosage: SEE IMAGE
     Route: 042
     Dates: start: 20020101

REACTIONS (12)
  - ALANINE AMINOTRANSFERASE INCREASED [None]
  - ASPARTATE AMINOTRANSFERASE INCREASED [None]
  - CAESAREAN SECTION [None]
  - COMPLICATIONS OF MATERNAL EXPOSURE TO THERAPEUTIC DRUGS [None]
  - HEPATIC FUNCTION ABNORMAL [None]
  - MATERNAL DRUGS AFFECTING FOETUS [None]
  - MYOGLOBINURIA [None]
  - PRE-ECLAMPSIA [None]
  - PREMATURE LABOUR [None]
  - PULMONARY OEDEMA [None]
  - RHABDOMYOLYSIS [None]
  - TWIN PREGNANCY [None]
